FAERS Safety Report 14783925 (Version 1)
Quarter: 2018Q2

REPORT INFORMATION
  Report Type: Report from Study
  Country: US (occurrence: US)
  Receive Date: 20180420
  Receipt Date: 20180420
  Transmission Date: 20180711
  Serious: Yes (Other)
  Sender: FDA-Public Use
  Company Number: US-CIPLA (EU) LIMITED-2018US16216

PATIENT

DRUGS (5)
  1. ETOPOSIDE. [Suspect]
     Active Substance: ETOPOSIDE
     Dosage: INFUSED 100 MG/M2,QD ON DAY 1 TO 3
     Route: 065
  2. OXALIPLATIN. [Suspect]
     Active Substance: OXALIPLATIN
     Indication: REFRACTORY CANCER
     Dosage: 130 MG/M2 ON DAY 1
     Route: 042
  3. IFOSFAMIDE. [Suspect]
     Active Substance: IFOSFAMIDE
     Dosage: INUSED 1500 MG/M2, QD ON DAY 1 TO 3
     Route: 065
  4. ETOPOSIDE. [Suspect]
     Active Substance: ETOPOSIDE
     Indication: REFRACTORY CANCER
     Dosage: INFUSED 75 MG/M2 ON DAY 1 TO 3
     Route: 065
  5. IFOSFAMIDE. [Suspect]
     Active Substance: IFOSFAMIDE
     Indication: REFRACTORY CANCER
     Dosage: INFUSED 1200 MG/M2 QD, ON DAY 1 TO 3
     Route: 065

REACTIONS (1)
  - Malignant neoplasm progression [Unknown]
